FAERS Safety Report 13159795 (Version 2)
Quarter: 2017Q3

REPORT INFORMATION
  Report Type: Spontaneous
  Country: ES (occurrence: ES)
  Receive Date: 20170127
  Receipt Date: 20170926
  Transmission Date: 20171127
  Serious: Yes (Hospitalization, Other)
  Sender: FDA-Public Use
  Company Number: ES-TEIKOKU PHARMA USA-TPU2017-00058

PATIENT
  Age: 83 Year
  Sex: Female

DRUGS (2)
  1. VERSATIS [Suspect]
     Active Substance: LIDOCAINE
     Indication: HERPES ZOSTER
     Route: 061
     Dates: start: 20170102, end: 20170102
  2. LYRICA [Concomitant]
     Active Substance: PREGABALIN
     Dates: start: 20170102

REACTIONS (6)
  - Atrial fibrillation [Recovered/Resolved with Sequelae]
  - Prescribed overdose [Recovered/Resolved with Sequelae]
  - Bundle branch block left [Recovered/Resolved with Sequelae]
  - Incorrect route of drug administration [Recovered/Resolved with Sequelae]
  - Drug prescribing error [Recovered/Resolved with Sequelae]
  - Syncope [Recovered/Resolved with Sequelae]

NARRATIVE: CASE EVENT DATE: 20170102
